FAERS Safety Report 6698121-6 (Version None)
Quarter: 2010Q2

REPORT INFORMATION
  Report Type: 
  Country: None (occurrence: None)
  Receive Date: 20100427
  Receipt Date: 20100416
  Transmission Date: 20101027
  Serious: Yes (Hospitalization, Other)
  Sender: FDA-Public Use
  Company Number: DE-PFIZER INC-2008072102

PATIENT
  Age: 74 Year
  Sex: Female
  Weight: 71 kg

DRUGS (14)
  1. SUNITINIB MALATE [Suspect]
     Indication: COLORECTAL CANCER METASTATIC
     Route: 048
     Dates: start: 20080731
  2. IRINOTECAN HCL [Suspect]
     Indication: COLORECTAL CANCER METASTATIC
     Dosage: 1 EVERY 2 WEEKS
     Route: 042
     Dates: start: 20080731
  3. FLUOROURACIL [Suspect]
     Dosage: 1 EVERY 2 WEEKS725 MG BOLUS
     Route: 042
     Dates: start: 20080731
  4. FLUOROURACIL [Suspect]
     Dosage: 1 EVERY 2 WEEKS
     Route: 042
     Dates: start: 20080731
  5. CALCIUM FOLINATE [Suspect]
     Dosage: 1 EVERY 2 WEEKS
     Route: 042
     Dates: start: 20080731
  6. AMLODIPINE [Concomitant]
     Dosage: 5 MG, ONE INTAKE IN THE EVENING
     Dates: start: 20070220
  7. RAMIPRIL [Concomitant]
     Dosage: 5 MG, ONE INTAKE IN THE EVENING
     Dates: start: 20080808
  8. LEVOTHYROXINE SODIUM [Concomitant]
     Dosage: 75 MG, ONE INTAKE IN THE MORNING
     Dates: start: 20080724
  9. FENTANYL-100 [Concomitant]
     Dosage: 1 EVERY 72 HOURS
     Dates: start: 20080722
  10. DELIX PLUS [Concomitant]
     Dosage: 5/25 MG, ONE INTAKE IN THE MORNING
     Dates: start: 20080808
  11. METOPROLOL SUCCINATE [Concomitant]
     Dosage: 47.5 MG,1 INTAKE IN THE MORNING,1 IN THE EVENING
     Dates: start: 20080811
  12. DIMENHYDRINATE [Concomitant]
     Dosage: 150 MG AT MORNING, MIDDAY, EVENING
     Dates: start: 20080811
  13. OMEP [Concomitant]
     Dosage: 40 MG, ONE INTAKE IN THE MORNING
     Dates: start: 20080814
  14. HALDOL [Concomitant]
     Dosage: 5 DROPS AT MORNING, MIDDAY, EVENING
     Dates: start: 20080724

REACTIONS (3)
  - FALL [None]
  - OVERDOSE [None]
  - VERTIGO [None]
